FAERS Safety Report 4373935-6 (Version None)
Quarter: 2004Q2

REPORT INFORMATION
  Report Type: 
  Country: None (occurrence: None)
  Receive Date: 20040604
  Receipt Date: 20040521
  Transmission Date: 20050107
  Serious: Yes (Hospitalization, Other)
  Sender: FDA-Public Use
  Company Number: USA-2002-0001484

PATIENT
  Age: 46 Year
  Sex: Female

DRUGS (42)
  1. OXYCONTIN [Suspect]
     Indication: PAIN
     Dosage: 40; 80 MG BID, ORAL
     Route: 048
     Dates: end: 20020201
  2. OXYCONTIN [Suspect]
     Indication: PAIN
     Dosage: 40; 80 MG BID, ORAL
     Route: 048
     Dates: start: 20000911
  3. DILANTIN [Concomitant]
  4. GLUCOPHAGE [Concomitant]
  5. BUSPAR [Concomitant]
  6. LORAZEPAM [Concomitant]
  7. NYSTATIN [Concomitant]
  8. TRICOR [Concomitant]
  9. EFFEXOR [Concomitant]
  10. HYZAAR [Concomitant]
  11. HUMULINI N (INSULIN HUMAN INJECTION, ISOPHANE) [Concomitant]
  12. PREMPHASE (PREMARIN;CYCRIN 14/14) [Concomitant]
  13. FAMVIR [Concomitant]
  14. ZYRTEC [Concomitant]
  15. HUMULIN R [Concomitant]
  16. HUMALOG [Concomitant]
  17. TEMAZEPAM [Concomitant]
  18. DIFLUCAN [Concomitant]
  19. LOTRISONE (CLOTRIMAZOLE, BETAMETHASONE DIPROPIONATE) [Concomitant]
  20. WELLBUTRIN [Concomitant]
  21. TRILEPTAL [Concomitant]
  22. TOBRADEX (DEXAMETHASONE) [Concomitant]
  23. SONATA [Concomitant]
  24. ACTIQ [Concomitant]
  25. DENAVIR (PENCICLOVIR) [Concomitant]
  26. PATANOL [Concomitant]
  27. BACTROBAN (MUPIROCIN) [Concomitant]
  28. ROXICET [Concomitant]
  29. PERCOCET [Concomitant]
  30. CEPHALEXIN [Concomitant]
  31. LIDA-MANTLE (LIDOCAINE) [Concomitant]
  32. CLOBETASOL (CLOBETASOL) [Concomitant]
  33. FLUOXETINE [Concomitant]
  34. COBALMYCIN (TETRACYCLINE) [Concomitant]
  35. RHINOCORT [Concomitant]
  36. AYGESTIN [Concomitant]
  37. AUGMENTIN [Concomitant]
  38. THYRAR (LEVOTHYROXINE) [Concomitant]
  39. ATIVAN [Concomitant]
  40. VITAMIN E [Concomitant]
  41. MULTIVITAMINS (ASCORBIC ACID, ERGOCALCIFEROL, FOLIC ACID, NICOTINAMIDE [Concomitant]
  42. RIBOFLAVIN, THIAMINE HYDROCHLORIDE) [Concomitant]

REACTIONS (25)
  - ALLERGY TO ANIMAL [None]
  - ANXIETY [None]
  - CELLULITIS [None]
  - DEPRESSION [None]
  - DIABETIC FOOT [None]
  - DIVERTICULITIS [None]
  - DRUG DEPENDENCE [None]
  - DRUG INEFFECTIVE [None]
  - DRUG WITHDRAWAL SYNDROME [None]
  - ERYTHEMA [None]
  - FATIGUE [None]
  - FLANK PAIN [None]
  - FUNGAL INFECTION [None]
  - HEADACHE [None]
  - HOUSE DUST ALLERGY [None]
  - NAUSEA [None]
  - NEPHROLITHIASIS [None]
  - NEURODERMATITIS [None]
  - OEDEMA PERIPHERAL [None]
  - OVARIAN CYST [None]
  - PAIN [None]
  - PAIN IN EXTREMITY [None]
  - PRURITUS [None]
  - SKIN INDURATION [None]
  - SOMNOLENCE [None]
